FAERS Safety Report 16074820 (Version 7)
Quarter: 2019Q3

REPORT INFORMATION
  Report Type: Report from Study
  Country: FR (occurrence: FR)
  Receive Date: 20190314
  Receipt Date: 20190909
  Transmission Date: 20191004
  Serious: Yes (Hospitalization, Other)
  Sender: FDA-Public Use
  Company Number: PHHY2018FR168767

PATIENT
  Age: 54 Year
  Sex: Male
  Weight: 66 kg

DRUGS (59)
  1. ADOPORT [Suspect]
     Active Substance: TACROLIMUS
     Dosage: 7.5 MG, UNK
     Route: 048
     Dates: start: 20181102, end: 20181103
  2. BACTRIM [Suspect]
     Active Substance: SULFAMETHOXAZOLE\TRIMETHOPRIM
     Dosage: 400 MG, QD
     Route: 065
     Dates: start: 20181109
  3. ROVALCYTE [Suspect]
     Active Substance: VALGANCICLOVIR HYDROCHLORIDE
     Dosage: 450 MG, QD
     Route: 065
     Dates: start: 20181109
  4. POLARAMINE [Concomitant]
     Active Substance: DEXCHLORPHENIRAMINE MALEATE
     Indication: PRODUCT USED FOR UNKNOWN INDICATION
     Dosage: 5 MG, QD
     Route: 065
     Dates: start: 20181106, end: 20181106
  5. ACEBUTOLOL [Concomitant]
     Active Substance: ACEBUTOLOL
     Indication: PRODUCT USED FOR UNKNOWN INDICATION
     Dosage: 400 MG, QD
     Route: 065
  6. ADOPORT [Suspect]
     Active Substance: TACROLIMUS
     Dosage: 7 MG, UNK
     Route: 048
     Dates: start: 20181101, end: 20181102
  7. ADOPORT [Suspect]
     Active Substance: TACROLIMUS
     Dosage: 8 MG, UNK
     Route: 048
     Dates: start: 20181103, end: 20181105
  8. ADOPORT [Suspect]
     Active Substance: TACROLIMUS
     Dosage: 9 MG, UNK
     Route: 048
     Dates: start: 20181115, end: 20181115
  9. ADOPORT [Suspect]
     Active Substance: TACROLIMUS
     Dosage: 18 MG, UNK
     Route: 048
  10. NOVONORM [Concomitant]
     Active Substance: REPAGLINIDE
     Indication: PRODUCT USED FOR UNKNOWN INDICATION
     Dosage: 1 MG, QD
     Route: 065
     Dates: start: 20181116, end: 20181116
  11. SOLU-MEDROL [Concomitant]
     Active Substance: METHYLPREDNISOLONE SODIUM SUCCINATE
     Dosage: UNK
     Route: 065
     Dates: start: 20181106, end: 20181106
  12. ADOPORT [Suspect]
     Active Substance: TACROLIMUS
     Dosage: 3.5 MG, UNK
     Route: 048
     Dates: start: 20181031, end: 20181101
  13. ROVALCYTE [Suspect]
     Active Substance: VALGANCICLOVIR HYDROCHLORIDE
     Indication: ANTIVIRAL PROPHYLAXIS
     Dosage: 450 MG, QD
     Route: 065
     Dates: start: 20181108
  14. AMLOR [Concomitant]
     Active Substance: AMLODIPINE BESYLATE
     Indication: PRODUCT USED FOR UNKNOWN INDICATION
     Dosage: 10 MG, QD
     Route: 065
     Dates: start: 20181101, end: 20181104
  15. BICARBONATE SODIUM [Concomitant]
     Active Substance: SODIUM BICARBONATE
     Indication: PRODUCT USED FOR UNKNOWN INDICATION
     Dosage: 3 G, QD
     Route: 065
     Dates: start: 20181104, end: 20181107
  16. LERCAN [Concomitant]
     Active Substance: LERCANIDIPINE
     Indication: PRODUCT USED FOR UNKNOWN INDICATION
     Dosage: 30 MG, QD
     Route: 065
     Dates: start: 20181106
  17. PARACETAMOL [Concomitant]
     Active Substance: ACETAMINOPHEN
     Indication: PRODUCT USED FOR UNKNOWN INDICATION
     Dosage: 3 G, QD
     Route: 065
     Dates: start: 20181106, end: 20181108
  18. PERFALGAN [Concomitant]
     Active Substance: ACETAMINOPHEN
     Indication: PRODUCT USED FOR UNKNOWN INDICATION
     Dosage: 4 G, QD
     Route: 065
     Dates: start: 20181031, end: 20181103
  19. SODIUM POLYSTYRENE SULFONATE. [Concomitant]
     Active Substance: SODIUM POLYSTYRENE SULFONATE
     Indication: PRODUCT USED FOR UNKNOWN INDICATION
     Dosage: UNK
     Route: 065
     Dates: start: 20181128, end: 20181203
  20. ADOPORT [Suspect]
     Active Substance: TACROLIMUS
     Dosage: 19 MG, UNK
     Route: 048
     Dates: start: 20181112, end: 20181113
  21. ADOPORT [Suspect]
     Active Substance: TACROLIMUS
     Dosage: 7 MG, UNK
     Route: 048
     Dates: start: 20181115, end: 20181116
  22. HYPERIUM [Concomitant]
     Active Substance: RILMENIDINE PHOSPHATE
     Indication: PRODUCT USED FOR UNKNOWN INDICATION
     Dosage: 2 MG, QD
     Route: 065
     Dates: start: 20181106, end: 20181111
  23. IMOVANE [Concomitant]
     Active Substance: ZOPICLONE
     Indication: PRODUCT USED FOR UNKNOWN INDICATION
     Dosage: 3.75 MG, QD
     Route: 065
     Dates: start: 20181101, end: 20181121
  24. KAYEXALATE [Concomitant]
     Active Substance: SODIUM POLYSTYRENE SULFONATE
     Indication: PRODUCT USED FOR UNKNOWN INDICATION
     Dosage: 30 G, QD
     Route: 065
     Dates: start: 20181114, end: 20181114
  25. NICOPATCH [Concomitant]
     Active Substance: NICOTINE
     Indication: PRODUCT USED FOR UNKNOWN INDICATION
     Dosage: 14 MG, QD
     Route: 065
     Dates: start: 20181122
  26. SIMULECT [Concomitant]
     Active Substance: BASILIXIMAB
     Indication: PRODUCT USED FOR UNKNOWN INDICATION
     Dosage: 20 MG, QD
     Route: 065
     Dates: start: 20181104, end: 20181104
  27. SOLU-MEDROL [Concomitant]
     Active Substance: METHYLPREDNISOLONE SODIUM SUCCINATE
     Indication: PRODUCT USED FOR UNKNOWN INDICATION
     Dosage: 500 MG, UNK
     Route: 065
     Dates: start: 20181031
  28. ADOPORT [Suspect]
     Active Substance: TACROLIMUS
     Dosage: 18 MG, UNK
     Route: 048
     Dates: start: 20181113, end: 20181114
  29. ADOPORT [Suspect]
     Active Substance: TACROLIMUS
     Dosage: 14 MG, UNK
     Route: 048
  30. AMIKLIN [Concomitant]
     Active Substance: AMIKACIN SULFATE
     Indication: PRODUCT USED FOR UNKNOWN INDICATION
     Dosage: 1250 MG, QD
     Route: 065
     Dates: start: 20181115, end: 20181122
  31. MORPHINE [Concomitant]
     Active Substance: MORPHINE
     Indication: PRODUCT USED FOR UNKNOWN INDICATION
     Dosage: 5 MG, QD
     Route: 065
     Dates: start: 20181031, end: 20181102
  32. MOVICOL [Concomitant]
     Active Substance: POLYETHYLENE GLYCOL 3350\POTASSIUM CHLORIDE\SODIUM BICARBONATE\SODIUM CHLORIDE
     Dosage: UNK
     Route: 065
     Dates: start: 20181111, end: 20181111
  33. SOLU-MEDROL [Concomitant]
     Active Substance: METHYLPREDNISOLONE SODIUM SUCCINATE
     Dosage: 125 MG, UNK
     Route: 065
     Dates: start: 20181101
  34. SPASFON [Concomitant]
     Indication: PRODUCT USED FOR UNKNOWN INDICATION
     Dosage: 160 MG, QD
     Route: 065
     Dates: start: 20181106, end: 20181114
  35. ADOPORT [Suspect]
     Active Substance: TACROLIMUS
     Indication: RENAL TRANSPLANT
     Dosage: 8 MG, UNK
     Route: 048
     Dates: start: 20181031
  36. ADOPORT [Suspect]
     Active Substance: TACROLIMUS
     Dosage: 14 MG, UNK
     Route: 048
     Dates: start: 20181106, end: 20181107
  37. MYFORTIC [Suspect]
     Active Substance: MYCOPHENOLATE SODIUM
     Indication: PRODUCT USED FOR UNKNOWN INDICATION
     Dosage: 1440 MG, QD
     Route: 065
     Dates: start: 20181031
  38. ACUPAN [Concomitant]
     Active Substance: NEFOPAM HYDROCHLORIDE
     Indication: PRODUCT USED FOR UNKNOWN INDICATION
     Dosage: 120 MG, QD
     Route: 065
     Dates: start: 20181031, end: 20181105
  39. BRICANYL [Concomitant]
     Active Substance: TERBUTALINE SULFATE
     Indication: PRODUCT USED FOR UNKNOWN INDICATION
     Dosage: 30 MG, QD
     Route: 065
     Dates: start: 20181106, end: 20181106
  40. DITROPAN [Concomitant]
     Active Substance: OXYBUTYNIN CHLORIDE
     Indication: PRODUCT USED FOR UNKNOWN INDICATION
     Dosage: 5 MG, QD
     Route: 065
     Dates: start: 20181106, end: 20181113
  41. LANZOPRAZOL [Concomitant]
     Active Substance: LANSOPRAZOLE
     Indication: PRODUCT USED FOR UNKNOWN INDICATION
     Dosage: 15 MG, QD
     Route: 065
     Dates: start: 20181101, end: 20181212
  42. ADOPORT [Suspect]
     Active Substance: TACROLIMUS
     Dosage: 16 MG, UNK
     Route: 048
     Dates: start: 20181107, end: 20181109
  43. BACTRIM [Suspect]
     Active Substance: SULFAMETHOXAZOLE\TRIMETHOPRIM
     Indication: ANTIFUNGAL PROPHYLAXIS
     Dosage: 400 MG, QD
     Route: 065
     Dates: start: 20181108
  44. BICARBONATE SODIUM [Concomitant]
     Active Substance: SODIUM BICARBONATE
     Dosage: UNK
     Route: 065
     Dates: start: 20181113
  45. CORTANCYL [Concomitant]
     Active Substance: PREDNISONE
     Indication: PRODUCT USED FOR UNKNOWN INDICATION
     Dosage: 10 MG, QD
     Route: 065
     Dates: start: 20181102
  46. EUPRESSYL [Concomitant]
     Active Substance: URAPIDIL
     Indication: PRODUCT USED FOR UNKNOWN INDICATION
     Dosage: 180 MG, QD
     Route: 065
     Dates: start: 20181103, end: 20181105
  47. IMOVANE [Concomitant]
     Active Substance: ZOPICLONE
     Dosage: UNK
     Route: 065
     Dates: start: 20181128, end: 20181129
  48. ROCEPHINE [Concomitant]
     Active Substance: CEFTRIAXONE SODIUM
     Indication: PRODUCT USED FOR UNKNOWN INDICATION
     Dosage: 1 G, QD
     Route: 065
     Dates: start: 20181115, end: 20181130
  49. XATRAL [Concomitant]
     Active Substance: ALFUZOSIN
     Indication: PRODUCT USED FOR UNKNOWN INDICATION
     Dosage: 10 MG, QD
     Route: 065
     Dates: start: 20181115
  50. ADOPORT [Suspect]
     Active Substance: TACROLIMUS
     Dosage: 10 MG, UNK
     Route: 048
     Dates: start: 20181105, end: 20181106
  51. ADOPORT [Suspect]
     Active Substance: TACROLIMUS
     Dosage: 18 MG, UNK
     Route: 048
     Dates: start: 20181109, end: 20181110
  52. ADOPORT [Suspect]
     Active Substance: TACROLIMUS
     Dosage: 20 MG, UNK
     Route: 048
     Dates: start: 20181110, end: 20181112
  53. ADOPORT [Suspect]
     Active Substance: TACROLIMUS
     Dosage: 14 MG, UNK
     Route: 048
     Dates: start: 20181116
  54. AUGMENTIN [Concomitant]
     Active Substance: AMOXICILLIN\CLAVULANATE POTASSIUM
     Indication: PRODUCT USED FOR UNKNOWN INDICATION
     Dosage: 2 G, QD
     Route: 065
     Dates: start: 20181122, end: 20181130
  55. BICARBONATE SODIUM [Concomitant]
     Active Substance: SODIUM BICARBONATE
     Dosage: UNK
     Route: 065
     Dates: start: 20181111
  56. FUNGIZONE [Concomitant]
     Active Substance: AMPHOTERICIN B
     Indication: PRODUCT USED FOR UNKNOWN INDICATION
     Dosage: 15 ML, QD
     Route: 065
     Dates: start: 20181106, end: 20181115
  57. MOVICOL [Concomitant]
     Active Substance: POLYETHYLENE GLYCOL 3350\POTASSIUM CHLORIDE\SODIUM BICARBONATE\SODIUM CHLORIDE
     Indication: PRODUCT USED FOR UNKNOWN INDICATION
     Dosage: 13.12 G, QD
     Route: 065
     Dates: start: 20181105, end: 20181105
  58. PARACETAMOL [Concomitant]
     Active Substance: ACETAMINOPHEN
     Dosage: UNK
     Route: 065
     Dates: start: 20181112, end: 20181113
  59. RIVOTRIL [Concomitant]
     Active Substance: CLONAZEPAM
     Indication: PRODUCT USED FOR UNKNOWN INDICATION
     Dosage: UNK
     Route: 065
     Dates: start: 20181113, end: 20181113

REACTIONS (9)
  - Urinary tract discomfort [Recovered/Resolved]
  - Urinary retention [Recovered/Resolved]
  - Hepatocellular injury [Recovering/Resolving]
  - Sepsis [Recovered/Resolved]
  - Urinoma [Recovered/Resolved]
  - Thrombocytopenia [Recovered/Resolved]
  - Hyperkalaemia [Recovered/Resolved]
  - Neutropenia [Recovered/Resolved]
  - Urinary tract discomfort [Recovered/Resolved]

NARRATIVE: CASE EVENT DATE: 20181031
